FAERS Safety Report 5329447-6 (Version None)
Quarter: 2007Q2

REPORT INFORMATION
  Report Type: 
  Country: None (occurrence: None)
  Receive Date: 20070221
  Receipt Date: 20060217
  Transmission Date: 20071010
  Serious: Yes (Hospitalization, Disabling)
  Sender: FDA-Public Use
  Company Number: BDI-007949

PATIENT
  Age: 84 Year
  Sex: Female
  Weight: 68 kg

DRUGS (8)
  1. IOPAMIDOL [Suspect]
     Indication: ARTERIOGRAM CORONARY
     Dosage: 350 ML SY
     Dates: start: 20051212, end: 20051212
  2. ANGIOMAX [Suspect]
     Indication: ARTERIOGRAM CORONARY
     Dosage: 0.75 MG/KG ONCE IV
     Route: 042
     Dates: start: 20051212, end: 20051212
  3. ANGIOMAX [Suspect]
     Indication: ARTERIOGRAM CORONARY
     Dosage: 1.75 MG/KG Q1HR IV
     Route: 042
     Dates: start: 20051212, end: 20051212
  4. VALIUM [Concomitant]
  5. BENADRYL [Concomitant]
  6. VERSED [Concomitant]
  7. FENTANYL [Concomitant]
  8. OXYGEN [Concomitant]

REACTIONS (1)
  - ANAPHYLACTIC REACTION [None]
